FAERS Safety Report 9571894 (Version 2)
Quarter: 2013Q4

REPORT INFORMATION
  Report Type: Report from Study
  Country: US (occurrence: US)
  Receive Date: 20131001
  Receipt Date: 20131001
  Transmission Date: 20140711
  Serious: No
  Sender: FDA-Public Use
  Company Number: US-ABBVIE-10P-163-0679240-00

PATIENT
  Sex: Female

DRUGS (1)
  1. KALETRA TABLETS [Suspect]
     Indication: HIV INFECTION
     Dates: start: 1996

REACTIONS (2)
  - Bronchitis [Recovering/Resolving]
  - Ill-defined disorder [Unknown]
